FAERS Safety Report 20199284 (Version 3)
Quarter: 2022Q1

REPORT INFORMATION
  Report Type: Report from Study
  Country: MX (occurrence: MX)
  Receive Date: 20211217
  Receipt Date: 20220202
  Transmission Date: 20220423
  Serious: No
  Sender: FDA-Public Use
  Company Number: MX-NOVARTISPH-NVSC2021MX087129

PATIENT
  Age: 66 Year
  Sex: Female
  Weight: 63 kg

DRUGS (1)
  1. FEMARA [Suspect]
     Active Substance: LETROZOLE
     Indication: Metastases to breast
     Dosage: 1 DF, QD(2.5MG)
     Route: 048
     Dates: start: 20191220

REACTIONS (10)
  - Stress [Unknown]
  - Discomfort [Unknown]
  - Gastrointestinal disorder [Recovered/Resolved]
  - Ear infection [Not Recovered/Not Resolved]
  - Ear discomfort [Unknown]
  - Tinnitus [Unknown]
  - Diarrhoea [Recovered/Resolved]
  - Vomiting [Recovered/Resolved]
  - Irritability [Recovered/Resolved]
  - Asthenia [Recovered/Resolved]

NARRATIVE: CASE EVENT DATE: 20210401
